FAERS Safety Report 7453073-6 (Version None)
Quarter: 2011Q2

REPORT INFORMATION
  Report Type: 
  Country: None (occurrence: None)
  Receive Date: 20110502
  Receipt Date: 20101221
  Transmission Date: 20111010
  Serious: No
  Sender: FDA-Public Use
  Company Number: US-ASTRAZENECA-2010SE60516

PATIENT
  Age: 64 Year
  Sex: Male

DRUGS (2)
  1. NEXIUM [Suspect]
     Route: 048
  2. TOPROL-XL [Suspect]
     Route: 048

REACTIONS (5)
  - FALL [None]
  - INSOMNIA [None]
  - SCIATICA [None]
  - HYPOKINESIA [None]
  - INTERVERTEBRAL DISC DEGENERATION [None]
